FAERS Safety Report 23029448 (Version 1)
Quarter: 2023Q4

REPORT INFORMATION
  Report Type: Spontaneous
  Country: CN (occurrence: CN)
  Receive Date: 20231004
  Receipt Date: 20231004
  Transmission Date: 20240109
  Serious: Yes (Hospitalization)
  Sender: FDA-Public Use
  Company Number: CN-PFIZER INC-PV202300163669

PATIENT
  Age: 13 Year
  Sex: Male
  Weight: 42 kg

DRUGS (2)
  1. METHOTREXATE SODIUM [Suspect]
     Active Substance: METHOTREXATE SODIUM
     Indication: Neoplasm
     Dosage: 3.9 MG, DAILY
     Route: 041
     Dates: start: 20230924, end: 20230925
  2. SODIUM CHLORIDE [Concomitant]
     Active Substance: SODIUM CHLORIDE
     Dosage: 500 ML, DAILY
     Route: 041
     Dates: start: 20230924, end: 20230925

REACTIONS (1)
  - Heart rate decreased [Unknown]

NARRATIVE: CASE EVENT DATE: 20230925
